FAERS Safety Report 12588128 (Version 2)
Quarter: 2017Q1

REPORT INFORMATION
  Report Type: Spontaneous
  Country: US (occurrence: US)
  Receive Date: 20160725
  Receipt Date: 20170220
  Transmission Date: 20170428
  Serious: Yes (Hospitalization)
  Sender: FDA-Public Use
  Company Number: US-PFIZER INC-2016348638

PATIENT
  Age: 87 Year
  Sex: Male

DRUGS (1)
  1. DICLOFENAC SODIUM. [Suspect]
     Active Substance: DICLOFENAC SODIUM
     Dosage: UNK
     Dates: start: 20160529, end: 20160610

REACTIONS (3)
  - Mobility decreased [Recovered/Resolved]
  - Activities of daily living impaired [Recovered/Resolved]
  - Drug hypersensitivity [Recovered/Resolved]
